FAERS Safety Report 19818597 (Version 1)
Quarter: 2021Q3

REPORT INFORMATION
  Report Type: Spontaneous
  Country: US (occurrence: US)
  Receive Date: 20210912
  Receipt Date: 20210912
  Transmission Date: 20211014
  Serious: No
  Sender: FDA-Public Use
  Company Number: US-ASTRAZENECA-2021A707346

PATIENT
  Sex: Male

DRUGS (3)
  1. OZEMPI [Concomitant]
  2. BYDUREON BCISE [Suspect]
     Active Substance: EXENATIDE
     Indication: TYPE 2 DIABETES MELLITUS
     Route: 058
  3. INSULIN [Concomitant]
     Active Substance: INSULIN NOS

REACTIONS (9)
  - Product dose omission issue [Unknown]
  - Device ineffective [Unknown]
  - Device failure [Unknown]
  - Injection site discolouration [Unknown]
  - Device use issue [Unknown]
  - Device malfunction [Unknown]
  - Product lot number issue [Unknown]
  - Product expiration date issue [Unknown]
  - Increased insulin requirement [Unknown]
